FAERS Safety Report 8515116-8 (Version None)
Quarter: 2012Q3

REPORT INFORMATION
  Report Type: 
  Country: None (occurrence: None)
  Receive Date: 20120717
  Receipt Date: 20120706
  Transmission Date: 20120928
  Serious: Yes (Hospitalization)
  Sender: FDA-Public Use
  Company Number: JP-VERTEX PHARMACEUTICALS INC.-AE-2012-010165

PATIENT
  Age: 54 Year
  Sex: Male

DRUGS (12)
  1. TELAVIC (TELAPREVIR) [Suspect]
     Route: 048
     Dates: start: 20120515, end: 20120530
  2. REBETOL [Concomitant]
     Route: 048
     Dates: start: 20120529, end: 20120530
  3. TELAVIC (TELAPREVIR) [Suspect]
     Route: 048
     Dates: start: 20120423, end: 20120514
  4. REBETOL [Concomitant]
     Route: 048
     Dates: start: 20120501, end: 20120521
  5. REBETOL [Concomitant]
     Route: 048
     Dates: start: 20120522, end: 20120528
  6. PEG-INTRON [Concomitant]
     Indication: HEPATITIS C
     Route: 058
     Dates: start: 20120410, end: 20120529
  7. SELBEX [Concomitant]
     Route: 048
     Dates: start: 20120410, end: 20120604
  8. TELAVIC (TELAPREVIR) [Suspect]
     Indication: HEPATITIS C
     Route: 048
     Dates: start: 20120410, end: 20120413
  9. REBETOL [Concomitant]
     Indication: HEPATITIS C
     Route: 048
     Dates: start: 20120410, end: 20120424
  10. TELAVIC (TELAPREVIR) [Suspect]
     Route: 048
     Dates: start: 20120414, end: 20120422
  11. REBETOL [Concomitant]
     Route: 048
     Dates: start: 20120425, end: 20120430
  12. XYZAL [Concomitant]
     Route: 048
     Dates: start: 20120207, end: 20120604

REACTIONS (11)
  - BLOOD CREATININE INCREASED [None]
  - HYPERURICAEMIA [None]
  - ANXIETY [None]
  - ANAEMIA [None]
  - PYREXIA [None]
  - RASH [None]
  - SUICIDAL IDEATION [None]
  - MANIA [None]
  - IRRITABILITY [None]
  - BIPOLAR I DISORDER [None]
  - DECREASED APPETITE [None]
